FAERS Safety Report 7754521-4 (Version None)
Quarter: 2011Q3

REPORT INFORMATION
  Report Type: 
  Country: None (occurrence: None)
  Receive Date: 20110915
  Receipt Date: 20110908
  Transmission Date: 20111222
  Serious: Yes (Other)
  Sender: FDA-Public Use
  Company Number: GB-ABBOTT-11P-167-0852371-00

PATIENT
  Age: 4 Year
  Sex: Male

DRUGS (15)
  1. GELOFUSIN [Suspect]
     Indication: PRODUCT USED FOR UNKNOWN INDICATION
  2. PHOSPHATE SUPPLEMENTS [Concomitant]
     Indication: BLOOD PHOSPHORUS DECREASED
     Dosage: MMOL/KG/DAY
  3. PEDIASURE [Suspect]
     Indication: DIARRHOEA
  4. SODIUM CHLORIDE 0.9% [Suspect]
     Indication: PRODUCT USED FOR UNKNOWN INDICATION
  5. GAVISCON [Suspect]
     Indication: PRODUCT USED FOR UNKNOWN INDICATION
  6. DIORALYTE [Suspect]
     Indication: FLUID REPLACEMENT
     Route: 050
  7. PHOSPHATE SUPPLEMENTS [Concomitant]
     Dosage: MMOL/KG/DAY
  8. ANTIBIOTICS [Concomitant]
     Indication: LOWER RESPIRATORY TRACT INFECTION
  9. PHOSPHATE SANDOZ [Suspect]
     Indication: PRODUCT USED FOR UNKNOWN INDICATION
  10. 0.45% SALINE [Suspect]
     Indication: PRODUCT USED FOR UNKNOWN INDICATION
  11. PEDIASURE [Suspect]
     Indication: FLUID REPLACEMENT
  12. SODIUM BICARBONATE [Suspect]
     Indication: DIARRHOEA
  13. SODIUM CHLORIDE [Concomitant]
     Indication: PRODUCT USED FOR UNKNOWN INDICATION
     Dosage: MMOL/KG/DAY
  14. VALPROATE SODIUM [Suspect]
     Indication: PRODUCT USED FOR UNKNOWN INDICATION
  15. SODIUM CHLORIDE [Concomitant]
     Dosage: MMOL/KG/DAY

REACTIONS (2)
  - HYPERNATRAEMIA [None]
  - FANCONI SYNDROME [None]
